FAERS Safety Report 5232689-1 (Version None)
Quarter: 2007Q1

REPORT INFORMATION
  Report Type: 
  Country: None (occurrence: None)
  Receive Date: 20070207
  Receipt Date: 20070131
  Transmission Date: 20070707
  Serious: Yes (Other)
  Sender: FDA-Public Use
  Company Number: 2007UW02007

PATIENT
  Age: 73 Year
  Sex: Female
  Weight: 63.5 kg

DRUGS (2)
  1. ARIMIDEX [Suspect]
     Indication: BREAST CANCER
     Route: 048
     Dates: start: 20060501
  2. VASOTEC [Concomitant]

REACTIONS (3)
  - DRY SKIN [None]
  - HEART RATE IRREGULAR [None]
  - RESPIRATORY TRACT INFECTION [None]
